FAERS Safety Report 14220419 (Version 1)
Quarter: 2017Q4

REPORT INFORMATION
  Report Type: Spontaneous
  Country: MW (occurrence: MW)
  Receive Date: 20171124
  Receipt Date: 20171124
  Transmission Date: 20180321
  Serious: Yes (Death, Hospitalization, Other)
  Sender: FDA-Public Use
  Company Number: MW-VIIV HEALTHCARE LIMITED-MW2017GSK178929

PATIENT
  Age: 13 Year
  Sex: Male

DRUGS (3)
  1. ABACAVIR. [Suspect]
     Active Substance: ABACAVIR
     Indication: HIV INFECTION
  2. LAMIVUDINE. [Suspect]
     Active Substance: LAMIVUDINE
     Indication: HIV INFECTION
  3. LOPINAVIR+RITONAVIR [Suspect]
     Active Substance: LOPINAVIR\RITONAVIR
     Indication: HIV INFECTION

REACTIONS (14)
  - Proteinuria [Unknown]
  - Dehydration [Unknown]
  - Hyponatraemia [Unknown]
  - Kidney enlargement [Unknown]
  - Oedematous kidney [Unknown]
  - Immune reconstitution inflammatory syndrome [Unknown]
  - Diarrhoea [Unknown]
  - Acute kidney injury [Unknown]
  - Respiratory distress [Fatal]
  - Vomiting [Unknown]
  - Anuria [Unknown]
  - Pyuria [Unknown]
  - Haematuria [Unknown]
  - Generalised oedema [Unknown]
